FAERS Safety Report 5971276-4 (Version None)
Quarter: 2008Q4

REPORT INFORMATION
  Report Type: 
  Country: None (occurrence: None)
  Receive Date: 20081128
  Receipt Date: 20081124
  Transmission Date: 20090506
  Serious: Yes (Death, Hospitalization)
  Sender: FDA-Public Use
  Company Number: US-PFIZER INC-2008088635

PATIENT
  Sex: Male
  Weight: 88.9 kg

DRUGS (9)
  1. SUTENT [Suspect]
     Indication: TRANSITIONAL CELL CARCINOMA
     Route: 048
     Dates: start: 20080924, end: 20081005
  2. NORVASC [Concomitant]
  3. XALATAN [Concomitant]
  4. TAMSULOSIN HCL [Concomitant]
  5. VICODIN [Concomitant]
  6. VITAMIN B6 [Concomitant]
  7. METOPROLOL TARTRATE [Concomitant]
  8. VIAGRA [Concomitant]
  9. IBUPROFEN TABLETS [Concomitant]

REACTIONS (5)
  - DISEASE PROGRESSION [None]
  - DIZZINESS [None]
  - HAEMATEMESIS [None]
  - MELAENA [None]
  - TRANSITIONAL CELL CARCINOMA [None]
